FAERS Safety Report 4582444-0 (Version None)
Quarter: 2005Q1

REPORT INFORMATION
  Report Type: 
  Country: None (occurrence: None)
  Receive Date: 20050125
  Receipt Date: 20040826
  Transmission Date: 20050727
  Serious: No
  Sender: FDA-Public Use
  Company Number: REM_00065_2004

PATIENT
  Age: 63 Year
  Sex: Female
  Weight: 63.3 kg

DRUGS (1)
  1. REMODULIN [Suspect]
     Indication: PULMONARY HYPERTENSION
     Dosage: 6 NG/KG/MIN CONTINOUS SC
     Route: 058
     Dates: start: 20040817

REACTIONS (5)
  - ACCIDENTAL OVERDOSE [None]
  - HEADACHE [None]
  - INFUSION SITE PAIN [None]
  - NAUSEA [None]
  - PAIN IN EXTREMITY [None]
